FAERS Safety Report 6515209-0 (Version None)
Quarter: 2009Q4

REPORT INFORMATION
  Report Type: 
  Country: None (occurrence: None)
  Receive Date: 20091223
  Receipt Date: 20091215
  Transmission Date: 20100525
  Serious: Yes (Other)
  Sender: FDA-Public Use
  Company Number: FR-JNJFOC-20091106917

PATIENT
  Age: 36 Year
  Sex: Female
  Weight: 51.5 kg

DRUGS (3)
  1. REMICADE [Suspect]
     Route: 042
     Dates: start: 20080602, end: 20090401
  2. REMICADE [Suspect]
     Indication: ENTEROCOLITIS HAEMORRHAGIC
     Route: 042
     Dates: start: 20080602, end: 20090401
  3. REMICADE [Suspect]
     Indication: CROHN'S DISEASE
     Route: 042
     Dates: start: 20080602, end: 20090401

REACTIONS (1)
  - BASAL CELL CARCINOMA [None]
